FAERS Safety Report 7086358-6 (Version None)
Quarter: 2010Q4

REPORT INFORMATION
  Report Type: 
  Country: None (occurrence: None)
  Receive Date: 20101105
  Receipt Date: 20100917
  Transmission Date: 20110411
  Serious: No
  Sender: FDA-Public Use
  Company Number: US-BAYER-201021606BCC

PATIENT
  Age: 80 Year
  Sex: Male
  Weight: 75 kg

DRUGS (8)
  1. ALEVE (CAPLET) [Suspect]
     Indication: PRODUCT USED FOR UNKNOWN INDICATION
     Dosage: TOTAL DAILY DOSE: 440 MG  UNIT DOSE: 220 MG
     Route: 048
     Dates: start: 20100916
  2. ENALAPRIL MALEATE [Concomitant]
  3. SERTRALINE HYDROCHLORIDE [Concomitant]
  4. DIGOXIN-COLCHICINE [Concomitant]
  5. CARVEDILOL [Concomitant]
  6. ASPIRIN [Concomitant]
  7. LIPITOR [Concomitant]
  8. STOOL SOFTER KIRKLAND [Concomitant]

REACTIONS (1)
  - SPONTANEOUS PENILE ERECTION [None]
